FAERS Safety Report 21076417 (Version 2)
Quarter: 2022Q3

REPORT INFORMATION
  Report Type: Spontaneous
  Country: US (occurrence: US)
  Receive Date: 20220713
  Receipt Date: 20220809
  Transmission Date: 20221027
  Serious: No
  Sender: FDA-Public Use
  Company Number: US-ELI_LILLY_AND_COMPANY-US202206006978

PATIENT
  Age: 24 Year
  Sex: Female
  Weight: 90.26 kg

DRUGS (5)
  1. EMGALITY [Suspect]
     Active Substance: GALCANEZUMAB-GNLM
     Indication: Migraine prophylaxis
     Dosage: UNK UNK, MONTHLY (1/M)
     Route: 058
     Dates: start: 202201, end: 202204
  2. AMITRIPTYLINE [Concomitant]
     Active Substance: AMITRIPTYLINE
     Indication: Migraine prophylaxis
     Dosage: 25 MG, DAILY
     Route: 048
     Dates: start: 2019
  3. PRISTIQ EXTENDED-RELEASE [Concomitant]
     Active Substance: DESVENLAFAXINE SUCCINATE
     Indication: Depression
     Dosage: 100 MG, DAILY
     Route: 048
     Dates: start: 201901
  4. HUMIRA [Concomitant]
     Active Substance: ADALIMUMAB
     Indication: Psoriasis
     Dosage: UNK UNK, 2/M
     Route: 058
     Dates: start: 2019
  5. IRON [Concomitant]
     Active Substance: IRON
     Indication: Thalassaemia
     Dosage: 200 MG, DAILY
     Route: 048
     Dates: start: 2018

REACTIONS (1)
  - Maternal exposure during pregnancy [Recovered/Resolved]
